FAERS Safety Report 5569384-5 (Version None)
Quarter: 2007Q4

REPORT INFORMATION
  Report Type: 
  Country: None (occurrence: None)
  Receive Date: 20071220
  Receipt Date: 20071217
  Transmission Date: 20080405
  Serious: Yes (Death)
  Sender: FDA-Public Use
  Company Number: US-ASTRAZENECA-2006UW09037

PATIENT
  Age: 469 Month
  Sex: Male

DRUGS (6)
  1. SEROQUEL [Suspect]
     Indication: SCHIZOPHRENIA
     Route: 048
     Dates: start: 19980401, end: 20010101
  2. SEROQUEL [Suspect]
     Indication: DEPRESSION
     Route: 048
     Dates: start: 19980401, end: 20010101
  3. RISPERDAL [Suspect]
     Indication: SCHIZOPHRENIA
     Dates: start: 20000301
  4. RISPERDAL [Suspect]
     Indication: DEPRESSION
     Dates: start: 20000301
  5. ZYPREXA [Suspect]
     Indication: SCHIZOPHRENIA
     Dates: start: 19980901, end: 20021001
  6. ZYPREXA [Suspect]
     Indication: DEPRESSION
     Dates: start: 19980901, end: 20021001

REACTIONS (2)
  - DEATH [None]
  - DIABETES MELLITUS [None]
